FAERS Safety Report 18315721 (Version 2)
Quarter: 2020Q4

REPORT INFORMATION
  Report Type: Spontaneous
  Country: US (occurrence: US)
  Receive Date: 20200926
  Receipt Date: 20201208
  Transmission Date: 20210113
  Serious: Yes (Disabling, Other)
  Sender: FDA-Public Use
  Company Number: US-SA-2020SA260104

PATIENT

DRUGS (1)
  1. ZANTAC [Suspect]
     Active Substance: RANITIDINE HYDROCHLORIDE
     Dosage: UNK
     Route: 048
     Dates: start: 1993, end: 2019

REACTIONS (7)
  - Plasma cell myeloma [Not Recovered/Not Resolved]
  - Anxiety [Unknown]
  - Disability [Unknown]
  - Injury [Unknown]
  - Pain [Unknown]
  - Deformity [Unknown]
  - Anhedonia [Unknown]

NARRATIVE: CASE EVENT DATE: 20200222
